FAERS Safety Report 9662796 (Version 2)
Quarter: 2013Q4

REPORT INFORMATION
  Report Type: Spontaneous
  Country: US (occurrence: US)
  Receive Date: 20131031
  Receipt Date: 20131031
  Transmission Date: 20140711
  Serious: Yes (Hospitalization)
  Sender: FDA-Public Use
  Company Number: US-NAPPMUNDI-USA-2010-0049478

PATIENT
  Age: 52 Year
  Sex: Female

DRUGS (2)
  1. OXYCONTIN (NDA 22-272) [Suspect]
     Indication: PAIN
     Dosage: 80 MG, Q12H
     Route: 048
     Dates: start: 201008
  2. TYLENOL                            /00020001/ [Concomitant]
     Indication: PAIN
     Dosage: 2 TABLET, SEE TEXT

REACTIONS (8)
  - Migraine [Recovered/Resolved]
  - Pyrexia [Recovered/Resolved]
  - Dehydration [Recovered/Resolved]
  - Somnolence [Recovered/Resolved]
  - Fatigue [Recovered/Resolved]
  - Drug effect decreased [Recovered/Resolved]
  - Drug effect delayed [Recovered/Resolved]
  - Formication [Recovered/Resolved]
